FAERS Safety Report 14757574 (Version 1)
Quarter: 2018Q2

REPORT INFORMATION
  Report Type: Spontaneous
  Country: SE (occurrence: SE)
  Receive Date: 20180413
  Receipt Date: 20180413
  Transmission Date: 20180711
  Serious: Yes (Life-Threatening, Hospitalization, Disabling)
  Sender: FDA-Public Use
  Company Number: SE-ASTRAZENECA-2018SE46447

PATIENT
  Age: 57 Year
  Sex: Male

DRUGS (11)
  1. INOLAXOL [Concomitant]
     Active Substance: HERBALS\KARAYA GUM
  2. MELATONIN [Concomitant]
     Active Substance: MELATONIN
  3. KALCIPOS-D [Concomitant]
     Active Substance: CALCIUM CARBONATE\CHOLECALCIFEROL
  4. SEROQUEL [Suspect]
     Active Substance: QUETIAPINE FUMARATE
     Indication: SCHIZOPHRENIA
     Route: 048
     Dates: start: 2006
  5. EMGESAN [Concomitant]
  6. IKTORIVIL [Concomitant]
     Active Substance: CLONAZEPAM
  7. BEHEPAN [Concomitant]
     Active Substance: HYDROXOCOBALAMIN
  8. KETOCONAZOLE. [Concomitant]
     Active Substance: KETOCONAZOLE
  9. ZYPREXA [Suspect]
     Active Substance: OLANZAPINE
     Indication: SCHIZOPHRENIA
     Route: 048
     Dates: start: 201701
  10. LEVAXIN [Concomitant]
     Active Substance: LEVOTHYROXINE SODIUM
  11. STILNOCT [Concomitant]
     Active Substance: ZOLPIDEM TARTRATE

REACTIONS (1)
  - Pulmonary embolism [Recovered/Resolved with Sequelae]

NARRATIVE: CASE EVENT DATE: 20180122
